FAERS Safety Report 23050784 (Version 1)
Quarter: 2023Q4

REPORT INFORMATION
  Report Type: Other
  Country: PT (occurrence: PT)
  Receive Date: 20231010
  Receipt Date: 20231010
  Transmission Date: 20240109
  Serious: Yes (Life-Threatening, Hospitalization, Other)
  Sender: FDA-Public Use
  Company Number: PT-EMA-DD-20230922-225467-130327

PATIENT
  Age: 68 Year
  Sex: Male

DRUGS (1)
  1. METFORMIN [Suspect]
     Active Substance: METFORMIN HYDROCHLORIDE
     Indication: Type 2 diabetes mellitus
     Dosage: 2000 MILLIGRAM DAILY;
     Route: 048

REACTIONS (10)
  - Lactic acidosis [Recovered/Resolved]
  - Tachypnoea [Recovered/Resolved]
  - Hyperkalaemia [Recovered/Resolved]
  - Prerenal failure [Recovered/Resolved]
  - Dehydration [Recovered/Resolved]
  - Gastroenteritis [Recovered/Resolved]
  - Diarrhoea [Recovered/Resolved]
  - Vomiting [Recovered/Resolved]
  - Leukocytosis [Recovered/Resolved]
  - Acidosis [Recovered/Resolved]
